FAERS Safety Report 24674369 (Version 3)
Quarter: 2025Q1

REPORT INFORMATION
  Report Type: Spontaneous
  Country: BR (occurrence: BR)
  Receive Date: 20241128
  Receipt Date: 20250213
  Transmission Date: 20250409
  Serious: No
  Sender: TOLMAR
  Company Number: BR-TOLMAR, INC.-24BR053804

PATIENT
  Age: 7 Year
  Sex: Female

DRUGS (3)
  1. ELIGARD [Suspect]
     Active Substance: LEUPROLIDE ACETATE
     Indication: Amenorrhoea
     Dosage: 45 MILLIGRAM, Q 6 MONTH
     Dates: start: 20241029
  2. ELIGARD [Suspect]
     Active Substance: LEUPROLIDE ACETATE
     Dosage: 45 MILLIGRAM, Q 6 MONTH
  3. ELIGARD [Suspect]
     Active Substance: LEUPROLIDE ACETATE
     Indication: Amenorrhoea

REACTIONS (5)
  - Intercepted product preparation error [Unknown]
  - Off label use [Not Recovered/Not Resolved]
  - Device leakage [Unknown]
  - Product physical consistency issue [Unknown]
  - Product administered by wrong person [Unknown]

NARRATIVE: CASE EVENT DATE: 20241029
